FAERS Safety Report 6134227-8 (Version None)
Quarter: 2009Q1

REPORT INFORMATION
  Report Type: 
  Country: None (occurrence: None)
  Receive Date: 20090325
  Receipt Date: 20090308
  Transmission Date: 20090719
  Serious: Yes (Other)
  Sender: FDA-Public Use
  Company Number: 2007S1003765

PATIENT
  Age: 66 Year
  Sex: Male
  Weight: 101.6057 kg

DRUGS (4)
  1. PHOSPHOSODA FLAVOR NOT SPECIFIED [Suspect]
     Indication: COLONOSCOPY
     Dosage: 90 ML;TOTAL;PO
     Route: 048
     Dates: start: 20050213, end: 20050213
  2. INDOMETHACIN [Concomitant]
  3. ASPIRIN [Concomitant]
  4. LOVASTATIN [Concomitant]

REACTIONS (10)
  - ABDOMINAL PAIN UPPER [None]
  - ANAEMIA [None]
  - ANOREXIA [None]
  - ASTHENIA [None]
  - DIARRHOEA [None]
  - DYSGEUSIA [None]
  - HYPOVOLAEMIA [None]
  - PAROSMIA [None]
  - RENAL FAILURE ACUTE [None]
  - RENAL FAILURE CHRONIC [None]
